FAERS Safety Report 6029400-3 (Version None)
Quarter: 2009Q1

REPORT INFORMATION
  Report Type: 
  Country: None (occurrence: None)
  Receive Date: 20090105
  Receipt Date: 20081219
  Transmission Date: 20090719
  Serious: Yes (Other)
  Sender: FDA-Public Use
  Company Number: JHP200800340

PATIENT
  Age: 65 Year
  Sex: Male

DRUGS (8)
  1. DANTRIUM [Suspect]
     Dosage: 50 MG, QD, ORAL
     Route: 048
  2. PROTAGEN S (CHLORMADINONE ACETATE) [Suspect]
  3. COLICOOL (CHLORPHENESIN CARBAMATE) [Suspect]
  4. UBRETID (DISTIGMINE BROMIDE) [Suspect]
  5. GLYCLAMIN (SODIUM GUALENATE) [Suspect]
  6. UNSPECIFIED DRUG () [Suspect]
  7. EVIPROSTAT (CHIMAPHILA UMBRELLATA, EQISITUM ARVENSE. MG CHLORODE, POPU [Suspect]
  8. MUCOSOLATE (AMROXOL HYDROCHLORIDE) [Suspect]

REACTIONS (2)
  - DRUG INTERACTION [None]
  - INAPPROPRIATE ANTIDIURETIC HORMONE SECRETION [None]
